FAERS Safety Report 9246873 (Version 4)
Quarter: 2013Q3

REPORT INFORMATION
  Report Type: Report from Study
  Country: ZA (occurrence: ZA)
  Receive Date: 20130422
  Receipt Date: 20130712
  Transmission Date: 20140515
  Serious: Yes (Hospitalization)
  Sender: FDA-Public Use
  Company Number: ZA-VIIV HEALTHCARE LIMITED-A1020284A

PATIENT
  Age: 34 Year
  Sex: Female

DRUGS (5)
  1. LAMIVUDINE-HIV [Suspect]
     Indication: HIV INFECTION
     Dosage: 300MG PER DAY
     Route: 048
     Dates: start: 20121130
  2. TENOFOVIR DISOPROXIL FUMARATE [Suspect]
     Indication: ANTIVIRAL TREATMENT
     Dosage: 300MG PER DAY
     Route: 048
     Dates: start: 20121130
  3. EDURANT [Suspect]
     Indication: ANTIVIRAL TREATMENT
     Dosage: 25MG PER DAY
     Route: 048
     Dates: start: 20081203, end: 20121130
  4. TRUVADA [Suspect]
     Indication: ANTIVIRAL TREATMENT
     Dosage: 1TAB PER DAY
     Route: 048
     Dates: start: 20081203, end: 20121130
  5. STOCRIN [Suspect]
     Indication: ANTIVIRAL TREATMENT
     Dosage: 600MG PER DAY
     Route: 048
     Dates: start: 20121130

REACTIONS (3)
  - Haemorrhage [Unknown]
  - Abortion spontaneous [Unknown]
  - Exposure during pregnancy [Unknown]
